FAERS Safety Report 4345250-8 (Version None)
Quarter: 2004Q2

REPORT INFORMATION
  Report Type: 
  Country: None (occurrence: None)
  Receive Date: 20040422
  Receipt Date: 20040422
  Transmission Date: 20050107
  Serious: Yes (Death)
  Sender: FDA-Public Use
  Company Number: None

PATIENT
  Age: 25 Year
  Sex: Male
  Weight: 41.7309 kg

DRUGS (2)
  1. CYCLOSPORINE [Suspect]
     Indication: NEPHROTIC SYNDROME
     Dosage: 150 MG PO BID
     Route: 048
     Dates: start: 19890101
  2. PREDNISONE [Suspect]
     Dosage: 10 MG PO Q DAY
     Route: 048

REACTIONS (2)
  - IMMUNOSUPPRESSION [None]
  - PNEUMATOSIS CYSTOIDES INTESTINALIS [None]
